FAERS Safety Report 10675330 (Version 1)
Quarter: 2014Q4

REPORT INFORMATION
  Report Type: Spontaneous
  Country: ES (occurrence: ES)
  Receive Date: 20141224
  Receipt Date: 20141224
  Transmission Date: 20150529
  Serious: Yes (Other)
  Sender: FDA-Public Use
  Company Number: PHHY2014ES165319

PATIENT
  Age: 23 Year
  Sex: Female

DRUGS (1)
  1. ENOXAPARIN SODIUM. [Suspect]
     Active Substance: ENOXAPARIN SODIUM
     Indication: EMBOLISM
     Dosage: 40 IU, QD
     Route: 058

REACTIONS (6)
  - Skin lesion [Unknown]
  - Injury [Unknown]
  - Skin mass [Unknown]
  - Idiosyncratic drug reaction [Unknown]
  - Skin tightness [Unknown]
  - Discomfort [Unknown]
